FAERS Safety Report 9591866 (Version 2)
Quarter: 2013Q4

REPORT INFORMATION
  Report Type: Spontaneous
  Country: US (occurrence: US)
  Receive Date: 20131004
  Receipt Date: 20131004
  Transmission Date: 20140711
  Serious: No
  Sender: FDA-Public Use
  Company Number: US-AMGEN-USASP2012077901

PATIENT
  Age: 52 Year
  Sex: Female
  Weight: 77.1 kg

DRUGS (8)
  1. ENBREL [Suspect]
     Indication: PRODUCT USED FOR UNKNOWN INDICATION
     Dosage: 50 MG, QWK
     Route: 058
  2. LIDODERM [Concomitant]
     Dosage: 5 % DIS
  3. VITAMIN D                          /00318501/ [Concomitant]
     Dosage: 50000 UNIT, UNK
  4. WELLBUTRIN [Concomitant]
     Dosage: 75 MG, UNK
  5. SIMVASTATIN [Concomitant]
     Dosage: 40 MG, UNK
  6. ARAVA [Concomitant]
     Dosage: 20 MG, UNK
  7. DIOVAN [Concomitant]
     Dosage: 320 MG, UNK
  8. CYMBALTA [Concomitant]
     Dosage: 30 MG, UNK

REACTIONS (3)
  - Dermatitis contact [Unknown]
  - Sinusitis [Unknown]
  - Gastroenteritis viral [Unknown]
